FAERS Safety Report 21837137 (Version 1)
Quarter: 2023Q1

REPORT INFORMATION
  Report Type: Spontaneous
  Country: KR (occurrence: KR)
  Receive Date: 20230109
  Receipt Date: 20230109
  Transmission Date: 20230417
  Serious: Yes (Other)
  Sender: FDA-Public Use
  Company Number: KR-ASTELLAS-2022US045655AA

PATIENT
  Sex: Male

DRUGS (2)
  1. TACROLIMUS [Interacting]
     Active Substance: TACROLIMUS
     Indication: Renal transplant
     Dosage: UNK, UNKNOWN FREQ.
     Route: 065
  2. NIRMATRELVIR [Interacting]
     Active Substance: NIRMATRELVIR
     Indication: COVID-19
     Dosage: UNK UNK, UNKNOWN FREQ.
     Route: 065

REACTIONS (3)
  - Toxicity to various agents [Recovered/Resolved]
  - Acute kidney injury [Recovered/Resolved]
  - Drug interaction [Unknown]
